FAERS Safety Report 13795308 (Version 1)
Quarter: 2017Q3

REPORT INFORMATION
  Report Type: Report from Study
  Country: US (occurrence: US)
  Receive Date: 20170726
  Receipt Date: 20170726
  Transmission Date: 20171127
  Serious: Yes (Life-Threatening, Hospitalization)
  Sender: FDA-Public Use
  Company Number: US-IPSEN BIOPHARMACEUTICALS, INC.-2016-11366

PATIENT
  Age: 57 Year
  Sex: Female
  Weight: 78 kg

DRUGS (4)
  1. LANREOTIDE AUTOGEL [Suspect]
     Active Substance: LANREOTIDE
     Indication: NEUROENDOCRINE TUMOUR
     Dosage: 120 MG
     Route: 058
     Dates: start: 20150507
  2. SYNTHROID [Concomitant]
     Active Substance: LEVOTHYROXINE SODIUM
     Indication: HYPOTHYROIDISM
     Route: 048
     Dates: start: 20150429
  3. ZYRTEC [Concomitant]
     Active Substance: CETIRIZINE HYDROCHLORIDE
     Indication: HYPERSENSITIVITY
     Route: 048
     Dates: start: 20150429
  4. MAGNESIUM OXIDE. [Concomitant]
     Active Substance: MAGNESIUM OXIDE
     Route: 048
     Dates: start: 20150429

REACTIONS (15)
  - Nausea [Recovering/Resolving]
  - Small intestinal obstruction [Recovered/Resolved]
  - Blood potassium increased [Recovered/Resolved]
  - Urinary tract infection [Unknown]
  - Dyspnoea [Recovered/Resolved]
  - Headache [Recovered/Resolved]
  - Small intestinal obstruction [Recovered/Resolved]
  - Blood chloride increased [Not Recovered/Not Resolved]
  - Blood glucose increased [Not Recovered/Not Resolved]
  - Small intestinal obstruction [Recovered/Resolved]
  - Small intestinal obstruction [Recovered/Resolved]
  - Vomiting [Recovering/Resolving]
  - Leukocytosis [Recovering/Resolving]
  - Palpitations [Recovered/Resolved]
  - Blood urea decreased [Not Recovered/Not Resolved]

NARRATIVE: CASE EVENT DATE: 2016
